FAERS Safety Report 4428679-9 (Version None)
Quarter: 2004Q3

REPORT INFORMATION
  Report Type: 
  Country: None (occurrence: None)
  Receive Date: 20040818
  Receipt Date: 20031014
  Transmission Date: 20050211
  Serious: No
  Sender: FDA-Public Use
  Company Number: US-BRISTOL-MYERS SQUIBB COMPANY-12412177

PATIENT
  Age: 30 Year

DRUGS (1)
  1. TEQUIN [Suspect]

REACTIONS (3)
  - DYSGEUSIA [None]
  - DYSPHAGIA [None]
  - SWOLLEN TONGUE [None]
